FAERS Safety Report 7932655-9 (Version None)
Quarter: 2011Q4

REPORT INFORMATION
  Report Type: 
  Country: None (occurrence: None)
  Receive Date: 20111122
  Receipt Date: 20111114
  Transmission Date: 20120403
  Serious: Yes (Death)
  Sender: FDA-Public Use
  Company Number: US-AMGEN-USASP2011051344

PATIENT
  Sex: Female

DRUGS (2)
  1. NPLATE [Suspect]
     Indication: THROMBOCYTOPENIA
  2. NPLATE [Suspect]
     Indication: IDIOPATHIC THROMBOCYTOPENIC PURPURA
     Dosage: UNK
     Dates: start: 20110621, end: 20110718

REACTIONS (1)
  - BREAST CANCER [None]
